FAERS Safety Report 10082153 (Version 4)
Quarter: 2014Q3

REPORT INFORMATION
  Report Type: Spontaneous
  Country: US (occurrence: US)
  Receive Date: 20140416
  Receipt Date: 20140731
  Transmission Date: 20150326
  Serious: Yes (Hospitalization, Disabling, Other)
  Sender: FDA-Public Use
  Company Number: US-009507513-1404USA004917

PATIENT
  Sex: Female

DRUGS (6)
  1. CALCIUM (UNSPECIFIED) (+) VITAMIN D (UNSPECIFIED) [Concomitant]
     Active Substance: CALCIUM CARBONATE\VITAMIN D
     Indication: OSTEOPOROSIS
     Dosage: 1500 MG, QD
     Dates: start: 1995
  2. FOSAMAX [Suspect]
     Active Substance: ALENDRONATE SODIUM
     Indication: OSTEOPENIA
     Dosage: 70 MG, QW
     Route: 048
     Dates: start: 200207, end: 200803
  3. ALENDRONATE SODIUM. [Suspect]
     Active Substance: ALENDRONATE SODIUM
     Indication: OSTEOPOROSIS
     Dosage: 70 MG, QW
     Route: 048
     Dates: start: 200803, end: 200903
  4. FLEXERIL [Concomitant]
     Active Substance: CYCLOBENZAPRINE HYDROCHLORIDE
     Indication: BACK PAIN
     Dosage: UNK
     Dates: start: 1994, end: 2006
  5. FOSAMAX [Suspect]
     Active Substance: ALENDRONATE SODIUM
     Indication: OSTEOPOROSIS
     Dosage: 10 MG, QD
     Route: 048
     Dates: start: 19951213, end: 200207
  6. SYNTHROID [Concomitant]
     Active Substance: LEVOTHYROXINE SODIUM
     Indication: HYPOTHYROIDISM
     Dosage: 75-88 MICROGRAM, QD
     Route: 048
     Dates: start: 1995

REACTIONS (36)
  - Intramedullary rod insertion [Unknown]
  - Internal fixation of fracture [Recovering/Resolving]
  - Femur fracture [Recovering/Resolving]
  - Fracture treatment [Unknown]
  - Hyperlipidaemia [Unknown]
  - Anger [Unknown]
  - Bursitis [Unknown]
  - Osteoarthritis [Recovered/Resolved with Sequelae]
  - Intramedullary rod insertion [Recovered/Resolved]
  - Cholecystectomy [Unknown]
  - Fracture nonunion [Recovering/Resolving]
  - Adverse event [Unknown]
  - Adverse event [Unknown]
  - Acne [Unknown]
  - Memory impairment [Unknown]
  - Anxiety [Unknown]
  - Anaemia [Recovered/Resolved]
  - Intervertebral disc degeneration [Unknown]
  - Anxiety [Unknown]
  - Medical device removal [Recovering/Resolving]
  - Depression [Not Recovered/Not Resolved]
  - Gastrooesophageal reflux disease [Unknown]
  - Muscle spasms [Unknown]
  - Pathological fracture [Recovered/Resolved]
  - Ectopic pregnancy [Unknown]
  - Acne cystic [Unknown]
  - Osteoarthritis [Unknown]
  - Spondylolisthesis [Unknown]
  - Device breakage [Unknown]
  - Insomnia [Unknown]
  - Laparotomy [Unknown]
  - Depression [Unknown]
  - Radiculitis [Unknown]
  - Feeling jittery [Unknown]
  - Drug ineffective [Unknown]
  - Foot fracture [Not Recovered/Not Resolved]

NARRATIVE: CASE EVENT DATE: 1996
